FAERS Safety Report 9616865 (Version 1)
Quarter: 2013Q4

REPORT INFORMATION
  Report Type: Report from Study
  Country: ES (occurrence: ES)
  Receive Date: 20131011
  Receipt Date: 20131011
  Transmission Date: 20140711
  Serious: Yes (Death, Other)
  Sender: FDA-Public Use
  Company Number: ES-PFIZER INC-2013286310

PATIENT
  Age: 74 Year
  Sex: Female

DRUGS (18)
  1. CYTARABINE [Suspect]
     Indication: BURKITT^S LYMPHOMA
     Dosage: UNK
  2. CYTARABINE [Suspect]
     Indication: LEUKAEMIC INFILTRATION BRAIN
     Dosage: UNK
     Route: 037
  3. METHOTREXATE SODIUM [Suspect]
     Indication: BURKITT^S LYMPHOMA
     Dosage: UNK
  4. METHOTREXATE SODIUM [Suspect]
     Indication: LEUKAEMIC INFILTRATION BRAIN
  5. ETOPOSIDE [Suspect]
     Indication: BURKITT^S LYMPHOMA
     Dosage: UNK
  6. ETOPOSIDE [Suspect]
     Indication: LEUKAEMIC INFILTRATION BRAIN
  7. IFOSFAMIDE [Suspect]
     Indication: BURKITT^S LYMPHOMA
     Dosage: UNK
  8. IFOSFAMIDE [Suspect]
     Indication: LEUKAEMIC INFILTRATION BRAIN
  9. DEXAMETHASONE [Suspect]
     Indication: BURKITT^S LYMPHOMA
     Dosage: UNK
  10. DEXAMETHASONE [Suspect]
     Indication: LEUKAEMIC INFILTRATION BRAIN
  11. CYCLOPHOSPHAMIDE [Suspect]
     Indication: BURKITT^S LYMPHOMA
     Dosage: UNK
  12. CYCLOPHOSPHAMIDE [Suspect]
     Indication: LEUKAEMIC INFILTRATION BRAIN
  13. PREDNISONE [Suspect]
     Indication: BURKITT^S LYMPHOMA
     Dosage: UNK
  14. PREDNISONE [Suspect]
     Indication: LEUKAEMIC INFILTRATION BRAIN
  15. RITUXIMAB [Suspect]
     Indication: BURKITT^S LYMPHOMA
     Dosage: UNK
  16. RITUXIMAB [Suspect]
     Indication: LEUKAEMIC INFILTRATION BRAIN
  17. RASBURICASE [Suspect]
     Indication: BURKITT^S LYMPHOMA
     Dosage: UNK
  18. RASBURICASE [Suspect]
     Indication: LEUKAEMIC INFILTRATION BRAIN

REACTIONS (6)
  - Respiratory failure [Fatal]
  - Candida infection [Unknown]
  - Neutropenia [Recovering/Resolving]
  - Pyrexia [Unknown]
  - Mucosal inflammation [Unknown]
  - Mouth ulceration [Unknown]
